FAERS Safety Report 20744372 (Version 2)
Quarter: 2022Q2

REPORT INFORMATION
  Report Type: Spontaneous
  Country: JP (occurrence: JP)
  Receive Date: 20220425
  Receipt Date: 20220516
  Transmission Date: 20220720
  Serious: Yes (Death)
  Sender: FDA-Public Use
  Company Number: JP-JNJFOC-20210146973

PATIENT
  Age: 70 Year
  Sex: Female

DRUGS (9)
  1. UPTRAVI [Suspect]
     Active Substance: SELEXIPAG
     Indication: Pulmonary arterial hypertension
     Route: 048
     Dates: start: 20201130
  2. UPTRAVI [Suspect]
     Active Substance: SELEXIPAG
     Route: 048
  3. UPTRAVI [Suspect]
     Active Substance: SELEXIPAG
     Route: 048
     Dates: end: 20220403
  4. ADCIRCA [Concomitant]
     Active Substance: TADALAFIL
     Indication: Pulmonary arterial hypertension
     Route: 065
     Dates: start: 20201116, end: 20220403
  5. REBAMIPIDE [Concomitant]
     Active Substance: REBAMIPIDE
     Route: 065
     Dates: start: 20210118
  6. PROGRAF [Concomitant]
     Active Substance: TACROLIMUS
     Indication: Polymyositis
     Dates: end: 20220403
  7. CARBOCYSTEINE [Concomitant]
     Active Substance: CARBOCYSTEINE
     Dates: end: 20220403
  8. PREDNISOLONE [Concomitant]
     Active Substance: PREDNISOLONE
     Dates: end: 20220403
  9. NESINA [Concomitant]
     Active Substance: ALOGLIPTIN BENZOATE
     Dates: end: 20220403

REACTIONS (2)
  - Pulmonary arterial hypertension [Fatal]
  - Abdominal pain [Recovered/Resolved]

NARRATIVE: CASE EVENT DATE: 20210118
